FAERS Safety Report 5359765-7 (Version None)
Quarter: 2007Q2

REPORT INFORMATION
  Report Type: 
  Country: None (occurrence: None)
  Receive Date: 20070615
  Receipt Date: 20070605
  Transmission Date: 20071010
  Serious: Yes (Hospitalization)
  Sender: FDA-Public Use
  Company Number: CN-PFIZER INC-2007048015

PATIENT
  Age: 73 Year
  Sex: Male

DRUGS (1)
  1. EPIRUBICIN [Suspect]
     Indication: BLADDER CANCER
     Dates: start: 20070312, end: 20070522

REACTIONS (3)
  - BLOOD URINE [None]
  - DYSURIA [None]
  - MICTURITION URGENCY [None]
